FAERS Safety Report 15674366 (Version 1)
Quarter: 2018Q4

REPORT INFORMATION
  Report Type: Spontaneous
  Country: ZA (occurrence: ZA)
  Receive Date: 20181130
  Receipt Date: 20181130
  Transmission Date: 20190205
  Serious: No
  Sender: FDA-Public Use
  Company Number: ZA-LUPIN PHARMACEUTICALS INC.-2018-01015

PATIENT
  Sex: Female

DRUGS (3)
  1. ELTROXIN [Concomitant]
     Active Substance: LEVOTHYROXINE
     Indication: THYROID DISORDER
     Dosage: 100 MCG, UNK
     Route: 048
  2. ZARTAN [Suspect]
     Active Substance: LOSARTAN POTASSIUM
     Indication: HYPERTENSION
     Dosage: 50 MG, UNK
     Route: 048
     Dates: start: 20170821, end: 201801
  3. ESTROFEM                           /00045401/ [Concomitant]
     Active Substance: ESTRADIOL
     Indication: HORMONE LEVEL ABNORMAL
     Dosage: 2 MG, UNK
     Route: 048

REACTIONS (1)
  - Palpitations [Recovered/Resolved]
